FAERS Safety Report 10750264 (Version 4)
Quarter: 2015Q2

REPORT INFORMATION
  Report Type: Spontaneous
  Country: BR (occurrence: BR)
  Receive Date: 20150129
  Receipt Date: 20150420
  Transmission Date: 20150821
  Serious: Yes (Other)
  Sender: FDA-Public Use
  Company Number: ALCN2015BR000863

PATIENT
  Age: 51 Year
  Sex: Male
  Weight: 100 kg

DRUGS (4)
  1. VIGADEXA [Suspect]
     Active Substance: DEXAMETHASONE SODIUM PHOSPHATE\MOXIFLOXACIN HYDROCHLORIDE
     Indication: EYE INFLAMMATION
  2. VIGADEXA [Suspect]
     Active Substance: DEXAMETHASONE SODIUM PHOSPHATE\MOXIFLOXACIN HYDROCHLORIDE
     Indication: EYE INFECTION
     Dosage: 1 GTT, QID
     Route: 047
  3. SINVASTATINA [Concomitant]
     Active Substance: SIMVASTATIN
     Indication: BLOOD CHOLESTEROL INCREASED
     Dosage: 1 DF, QD
     Route: 048
     Dates: start: 201411
  4. RAMIPRIL. [Concomitant]
     Active Substance: RAMIPRIL
     Indication: HYPERTENSION
     Dosage: 1 DF, QD
     Route: 048
     Dates: start: 2014

REACTIONS (3)
  - Vision blurred [Recovering/Resolving]
  - Retinal detachment [Recovering/Resolving]
  - Eye haemorrhage [Recovering/Resolving]
